FAERS Safety Report 5794626-0 (Version None)
Quarter: 2008Q2

REPORT INFORMATION
  Report Type: 
  Country: None (occurrence: None)
  Receive Date: 20080627
  Receipt Date: 20080627
  Transmission Date: 20081010
  Serious: Yes (Hospitalization)
  Sender: FDA-Public Use
  Company Number: None

PATIENT
  Sex: Male
  Weight: 92.9874 kg

DRUGS (9)
  1. COUMADIN [Suspect]
     Indication: ANTICOAGULANT THERAPY
     Dosage: 5 MG PO DAILY  PRIOR TO ADMISSION
     Route: 048
  2. KLOR-CON [Concomitant]
  3. FUROSEMIDE [Concomitant]
  4. LEVOTHYROXINE SODIUM [Concomitant]
  5. TOPROL-XL [Concomitant]
  6. LIPITOR [Concomitant]
  7. ZETIA [Concomitant]
  8. ASPIRIN [Concomitant]
  9. FOLIC ACID [Concomitant]

REACTIONS (1)
  - EPISTAXIS [None]
